FAERS Safety Report 7064758-8 (Version None)
Quarter: 2010Q4

REPORT INFORMATION
  Report Type: 
  Country: None (occurrence: None)
  Receive Date: 20101027
  Receipt Date: 19740821
  Transmission Date: 20110411
  Serious: Yes (Death)
  Sender: FDA-Public Use
  Company Number: CH-ROCHE-740112612001

PATIENT
  Sex: Male
  Weight: 8 kg

DRUGS (5)
  1. RIVOTRIL [Suspect]
     Route: 013
     Dates: start: 19740731, end: 19740731
  2. RIVOTRIL [Suspect]
     Route: 013
     Dates: start: 19740608, end: 19740730
  3. PRIMIDONE [Concomitant]
     Indication: EPILEPSY
     Route: 048
     Dates: start: 19740714, end: 19740730
  4. ANTIBIOTIC [Concomitant]
     Route: 065
  5. RIVOTRIL [Concomitant]
     Indication: EPILEPSY
     Route: 048
     Dates: start: 19740608, end: 19740730

REACTIONS (2)
  - EXTREMITY NECROSIS [None]
  - POISONING [None]
